FAERS Safety Report 20971454 (Version 4)
Quarter: 2022Q4

REPORT INFORMATION
  Report Type: Spontaneous
  Country: US (occurrence: US)
  Receive Date: 20220616
  Receipt Date: 20221010
  Transmission Date: 20230113
  Serious: Yes (Hospitalization, Other)
  Sender: FDA-Public Use
  Company Number: US-SA-2022SA222335

PATIENT
  Age: 58 Year
  Sex: Male

DRUGS (1)
  1. DUPIXENT [Suspect]
     Active Substance: DUPILUMAB
     Indication: Dermatitis atopic
     Dosage: 300 MG, QOW
     Route: 058
     Dates: start: 202010

REACTIONS (11)
  - Brain scan abnormal [Unknown]
  - Skin cancer [Unknown]
  - Chest pain [Unknown]
  - Anxiety [Unknown]
  - Pruritus [Unknown]
  - Dyspnoea [Unknown]
  - Asthma [Unknown]
  - Bronchitis [Unknown]
  - Somnolence [Unknown]
  - Fatigue [Unknown]
  - Nasal neoplasm [Unknown]

NARRATIVE: CASE EVENT DATE: 20211201
